FAERS Safety Report 8797144 (Version 1)
Quarter: 2012Q4

REPORT INFORMATION
  Report Type: 
  Country: DE (occurrence: DE)
  Receive Date: 20120920
  Receipt Date: 20120920
  Transmission Date: 20130627
  Serious: Yes (Disabling)
  Sender: FDA-Public Use
  Company Number: DE-US-EMD SERONO, INC.-7002390

PATIENT
  Age: 59 Year
  Sex: Female

DRUGS (1)
  1. REBIF [Suspect]
     Indication: MULTIPLE SCLEROSIS
     Route: 058
     Dates: start: 200804

REACTIONS (2)
  - Ulnar nerve palsy [Not Recovered/Not Resolved]
  - Wrong technique in drug usage process [Unknown]
